FAERS Safety Report 4479195-X (Version None)
Quarter: 2004Q4

REPORT INFORMATION
  Report Type: 
  Country: None (occurrence: None)
  Receive Date: 20041015
  Receipt Date: 20030318
  Transmission Date: 20050328
  Serious: Yes (Death)
  Sender: FDA-Public Use
  Company Number: 2004237692CA

PATIENT
  Age: 70 Year
  Sex: Female

DRUGS (4)
  1. ZYVOX [Suspect]
     Indication: BACTERAEMIA
     Dosage: 600 MG, BID, ORAL
     Route: 048
     Dates: start: 20020416, end: 20020426
  2. IMIPENEM [Concomitant]
  3. CEFAZOLIN [Concomitant]
  4. CEFUROXIME [Concomitant]

REACTIONS (2)
  - ACUTE MYELOID LEUKAEMIA [None]
  - CONDITION AGGRAVATED [None]
